FAERS Safety Report 7004986-0 (Version None)
Quarter: 2010Q3

REPORT INFORMATION
  Report Type: 
  Country: None (occurrence: None)
  Receive Date: 20100920
  Receipt Date: 20100920
  Transmission Date: 20110219
  Serious: Yes (Life-Threatening, Hospitalization, Other)
  Sender: FDA-Public Use
  Company Number: None

PATIENT
  Sex: Female
  Weight: 63.9572 kg

DRUGS (1)
  1. OCELLA 3MG 0.03 MG TABLET OCELLA [Suspect]
     Indication: ORAL CONTRACEPTION
     Dosage: ONCE DAILY PO
     Route: 048
     Dates: start: 20090807, end: 20100908

REACTIONS (1)
  - PULMONARY EMBOLISM [None]
